FAERS Safety Report 13584222 (Version 4)
Quarter: 2017Q4

REPORT INFORMATION
  Report Type: Spontaneous
  Country: US (occurrence: US)
  Receive Date: 20170526
  Receipt Date: 20171025
  Transmission Date: 20180320
  Serious: Yes (Death, Hospitalization, Other)
  Sender: FDA-Public Use
  Company Number: US-PFIZER INC-2017227832

PATIENT
  Age: 84 Year
  Sex: Female
  Weight: 66.66 kg

DRUGS (15)
  1. ADALAT CC [Concomitant]
     Active Substance: NIFEDIPINE
     Dosage: 30 MG, DAILY
     Route: 048
  2. NITROQUICK [Concomitant]
     Active Substance: NITROGLYCERIN
     Dosage: 0.4 MG, (EVERY 1 HOUR) AS NEEDED
     Route: 060
  3. PERCOCET [Concomitant]
     Active Substance: ACETAMINOPHEN\OXYCODONE HYDROCHLORIDE
     Dosage: 1 DF, AS NEEDED (EVERY 6 HOURS)
     Route: 048
  4. IBRANCE [Suspect]
     Active Substance: PALBOCICLIB
     Indication: BREAST CANCER METASTATIC
     Dosage: 125 MG, CYCLIC (DAILY FOR 21 DAYS, 7 DAYS OFF/DAY 1-21 EVERY 28 DAYS/QD DAYS 1-2 Q 28 DAYS)
     Route: 048
     Dates: start: 201705
  5. FEMARA [Concomitant]
     Active Substance: LETROZOLE
     Dosage: 2.5 MG, DAILY
     Route: 048
  6. LIPITOR [Concomitant]
     Active Substance: ATORVASTATIN CALCIUM
     Dosage: 40 MG, 1X/DAY (AT BEDTIME)
     Route: 048
  7. VOLTAREN [Concomitant]
     Active Substance: DICLOFENAC SODIUM
     Dosage: UNK, (4X DAILY) AS NEEDED
     Route: 061
  8. NEPTAZANE [Concomitant]
     Active Substance: METHAZOLAMIDE
     Dosage: 50 MG, DAILY
     Route: 048
  9. GLUCOSAMINE + CHONDROITIN WITH MSM [Concomitant]
     Dosage: 750/400/375, DAILY
  10. DIOVAN [Concomitant]
     Active Substance: VALSARTAN
     Dosage: 320 MG, DAILY
     Route: 048
  11. CARAFATE [Concomitant]
     Active Substance: SUCRALFATE
     Dosage: 1 G, 1X/DAY (BEFORE MEALS)
     Route: 048
  12. PRILOSEC [Concomitant]
     Active Substance: OMEPRAZOLE MAGNESIUM
     Dosage: 20 MG, UNK (WITH BREAKFAST)
     Route: 048
  13. ZETIA [Concomitant]
     Active Substance: EZETIMIBE
     Dosage: 10 MG, 1X/DAY (AT BEDTIME)
     Route: 048
  14. MYCOSTATIN [Concomitant]
     Active Substance: NYSTATIN
     Dosage: 15 G, TWICE A DAY  [1 APPLICATION]
     Route: 061
  15. COREG [Concomitant]
     Active Substance: CARVEDILOL
     Dosage: 25 MG, TWICE A DAY
     Route: 048

REACTIONS (15)
  - Abdominal discomfort [Unknown]
  - Upper respiratory tract infection [Unknown]
  - Cough [Unknown]
  - Duodenal ulcer [Unknown]
  - Decreased appetite [Unknown]
  - Gastrointestinal haemorrhage [Unknown]
  - Pneumonia aspiration [Unknown]
  - Thrombocytopenia [Unknown]
  - Back pain [Unknown]
  - Peripheral swelling [Unknown]
  - Death [Fatal]
  - Neoplasm progression [Unknown]
  - Condition aggravated [Unknown]
  - Melaena [Unknown]
  - Anaemia [Unknown]

NARRATIVE: CASE EVENT DATE: 2017
